FAERS Safety Report 6869208-X (Version None)
Quarter: 2010Q3

REPORT INFORMATION
  Report Type: 
  Country: None (occurrence: None)
  Receive Date: 20100722
  Receipt Date: 20080923
  Transmission Date: 20110219
  Serious: Yes (Other)
  Sender: FDA-Public Use
  Company Number: US-PFIZER INC-2008056880

PATIENT
  Sex: Female
  Weight: 66.7 kg

DRUGS (1)
  1. CHANTIX [Suspect]
     Indication: SMOKING CESSATION THERAPY
     Route: 048
     Dates: start: 20080616, end: 20080716

REACTIONS (4)
  - ADVERSE EVENT [None]
  - PAIN [None]
  - RESTLESS LEGS SYNDROME [None]
  - SLEEP DISORDER [None]
